FAERS Safety Report 7402729-X (Version None)
Quarter: 2011Q1

REPORT INFORMATION
  Report Type: 
  Country: None (occurrence: None)
  Receive Date: 20110329
  Receipt Date: 20110322
  Transmission Date: 20110831
  Serious: Yes (Life-Threatening, Hospitalization, Other)
  Sender: FDA-Public Use
  Company Number: 20119961

PATIENT
  Sex: Male

DRUGS (2)
  1. MORPHINE [Concomitant]
  2. LIORESAL [Suspect]
     Indication: MUSCLE SPASTICITY
     Dosage: DAILY, INTRATHECAL
     Route: 037

REACTIONS (12)
  - WITHDRAWAL SYNDROME [None]
  - CYANOSIS [None]
  - TACHYCARDIA [None]
  - DIZZINESS [None]
  - NAUSEA [None]
  - OVERDOSE [None]
  - RESPIRATORY ARREST [None]
  - VOMITING [None]
  - HYPERHIDROSIS [None]
  - VIRAL INFECTION [None]
  - HYPOXIA [None]
  - HEADACHE [None]
